FAERS Safety Report 5121024-5 (Version None)
Quarter: 2006Q4

REPORT INFORMATION
  Report Type: 
  Country: None (occurrence: None)
  Receive Date: 20061005
  Receipt Date: 20060927
  Transmission Date: 20070319
  Serious: Yes (Other)
  Sender: FDA-Public Use
  Company Number: US-MERCK-0609USA07430

PATIENT
  Age: 54 Year
  Sex: Female

DRUGS (4)
  1. FOSAMAX [Suspect]
     Indication: OSTEOPENIA
     Route: 048
     Dates: start: 20060501, end: 20060501
  2. FOSAMAX [Suspect]
     Route: 048
     Dates: start: 20060916, end: 20060923
  3. ZANTAC [Concomitant]
     Route: 065
  4. ALLEGRA [Concomitant]
     Route: 065

REACTIONS (3)
  - BONE PAIN [None]
  - MYALGIA [None]
  - PYREXIA [None]
